FAERS Safety Report 7634073-X (Version None)
Quarter: 2011Q3

REPORT INFORMATION
  Report Type: 
  Country: None (occurrence: None)
  Receive Date: 20110725
  Receipt Date: 20110720
  Transmission Date: 20111222
  Serious: Yes (Other)
  Sender: FDA-Public Use
  Company Number: ES-ABBOTT-11P-144-0839860-00

PATIENT

DRUGS (1)
  1. ADALIMUMAB [Suspect]
     Indication: CROHN'S DISEASE

REACTIONS (1)
  - LOSS OF CONSCIOUSNESS [None]
